FAERS Safety Report 18184560 (Version 3)
Quarter: 2020Q3

REPORT INFORMATION
  Report Type: Spontaneous
  Country: US (occurrence: US)
  Receive Date: 20200824
  Receipt Date: 20200922
  Transmission Date: 20201103
  Serious: Yes (Other)
  Sender: FDA-Public Use
  Company Number: US-ROCHE-2662147

PATIENT
  Sex: Female

DRUGS (1)
  1. OCREVUS [Suspect]
     Active Substance: OCRELIZUMAB
     Indication: PRODUCT USED FOR UNKNOWN INDICATION
     Dosage: SUBSEQUENT INFUSION DATES: JAN/2018, AUG/2018, FEB/2019 AND SEP/2019.
     Route: 065
     Dates: start: 201705

REACTIONS (1)
  - Intraductal proliferative breast lesion [Unknown]
